FAERS Safety Report 19804355 (Version 1)
Quarter: 2021Q3

REPORT INFORMATION
  Report Type: Spontaneous
  Country: US (occurrence: US)
  Receive Date: 20210908
  Receipt Date: 20210908
  Transmission Date: 20211014
  Serious: No
  Sender: FDA-Public Use
  Company Number: US-FARMAPROD-202105-0780

PATIENT
  Sex: Female

DRUGS (13)
  1. RESTASIS [Concomitant]
     Active Substance: CYCLOSPORINE
     Dosage: DROPERETTE
  2. LUTEIN [Concomitant]
     Active Substance: LUTEIN
  3. MULTIVITAMIN [Concomitant]
     Active Substance: VITAMINS
     Dosage: GUMMIES
  4. VYVANSE [Concomitant]
     Active Substance: LISDEXAMFETAMINE DIMESYLATE
  5. FISH OIL [Concomitant]
     Active Substance: FISH OIL
     Dosage: 360?1200 MG
  6. MILK THISTLE [Concomitant]
     Active Substance: DIETARY SUPPLEMENT\HERBALS\MILK THISTLE
  7. OXERVATE [Suspect]
     Active Substance: CENEGERMIN-BKBJ
     Indication: HYPOAESTHESIA EYE
  8. AMLODIPINE BESYLATE. [Concomitant]
     Active Substance: AMLODIPINE BESYLATE
  9. OXERVATE [Suspect]
     Active Substance: CENEGERMIN-BKBJ
     Indication: NEUROTROPHIC KERATOPATHY
     Route: 047
     Dates: start: 20210326
  10. KLONOPIN [Concomitant]
     Active Substance: CLONAZEPAM
  11. BLACK ELDERBERRY [Concomitant]
     Dosage: 460?115 MG
  12. BIOTIN [Concomitant]
     Active Substance: BIOTIN
  13. OMEPRAZOLE. [Concomitant]
     Active Substance: OMEPRAZOLE
     Dosage: DELAYED RELEASE TABLET

REACTIONS (1)
  - Photophobia [Recovering/Resolving]
